FAERS Safety Report 25142822 (Version 2)
Quarter: 2025Q2

REPORT INFORMATION
  Report Type: Spontaneous
  Country: DE (occurrence: DE)
  Receive Date: 20250331
  Receipt Date: 20250505
  Transmission Date: 20250717
  Serious: Yes (Other)
  Sender: AMGEN
  Company Number: DE-AMGEN-DEUSP2025060117

PATIENT
  Age: 14 Month
  Sex: Male

DRUGS (18)
  1. FILGRASTIM [Suspect]
     Active Substance: FILGRASTIM
     Indication: Prophylaxis
     Dosage: 5 MICROGRAM/KILOGRAM, QD, FROM DAY + 5 FOR 6 CONSECUTIVE DAYS
     Route: 065
  2. CEFOTAXIME [Concomitant]
     Active Substance: CEFOTAXIME SODIUM
     Indication: Antibiotic prophylaxis
  3. METRONIDAZOLE [Concomitant]
     Active Substance: METRONIDAZOLE
     Indication: Antibiotic prophylaxis
  4. METHYLPREDNISOLONE [Concomitant]
     Active Substance: METHYLPREDNISOLONE
     Indication: Chronic granulomatous disease
     Dosage: 20 MILLIGRAM/KILOGRAM, QD, FROM DAY -11  TO DAY -9
  5. LEVETIRACETAM [Concomitant]
     Active Substance: LEVETIRACETAM
     Indication: Seizure prophylaxis
     Dosage: 20 MILLIGRAM/KILOGRAM, QD, DAY - 9 THROUGH DAY PLUS 5
  6. GRAFALON [Concomitant]
     Active Substance: LAPINE T-LYMPHOCYTE IMMUNE GLOBULIN
     Dosage: 20 MILLIGRAM/KILOGRAM, QD, DAY -11 TO DAY - 09
  7. FLUDARABINE [Concomitant]
     Active Substance: FLUDARABINE PHOSPHATE
     Dosage: 30 MILLIGRAM/KILOGRAM, QD, (DAY - 8 TO DAY - 4
  8. THIOTEPA [Concomitant]
     Active Substance: THIOTEPA
     Dosage: 10 MILLIGRAM/KILOGRAM, QD, ON DAY - 2.
  9. BUSULFAN [Concomitant]
     Active Substance: BUSULFAN
  10. MYCOPHENOLATE MOFETIL [Concomitant]
     Active Substance: MYCOPHENOLATE MOFETIL
     Indication: Prophylaxis
     Dosage: UNK UNK, QD,  X 600 MG/M2/D, FROM DAY + 1 UNTIL DAY + 28
  11. HEPARIN [Concomitant]
     Active Substance: HEPARIN SODIUM
     Indication: Prophylaxis
     Route: 040
  12. CIDOFOVIR [Concomitant]
     Active Substance: CIDOFOVIR
     Indication: Sepsis
  13. CIDOFOVIR [Concomitant]
     Active Substance: CIDOFOVIR
     Indication: Serratia infection
  14. AMPHOTERICIN B [Concomitant]
     Active Substance: AMPHOTERICIN B
     Indication: Sepsis
     Route: 040
  15. AMPHOTERICIN B [Concomitant]
     Active Substance: AMPHOTERICIN B
     Indication: Serratia infection
  16. POSACONAZOLE [Concomitant]
     Active Substance: POSACONAZOLE
     Indication: Sepsis
     Route: 048
  17. POSACONAZOLE [Concomitant]
     Active Substance: POSACONAZOLE
     Indication: Serratia infection
  18. ACYCLOVIR [Concomitant]
     Active Substance: ACYCLOVIR
     Indication: Prophylaxis

REACTIONS (2)
  - Venoocclusive liver disease [Unknown]
  - Venoocclusive disease [Unknown]
